FAERS Safety Report 16847866 (Version 1)
Quarter: 2019Q3

REPORT INFORMATION
  Report Type: Other
  Country: US (occurrence: US)
  Receive Date: 20190924
  Receipt Date: 20190924
  Transmission Date: 20191005
  Serious: No
  Sender: FDA-Public Use
  Company Number: US-ACORDA-ACO_161015_2019

PATIENT
  Sex: Female

DRUGS (1)
  1. INBRIJA [Suspect]
     Active Substance: LEVODOPA
     Indication: PARKINSON^S DISEASE
     Dosage: TWO CAPSULES (84 MILLIGRAM TOTAL), UP TO FIVE TIMES PER DAY PRN
     Dates: start: 20190909

REACTIONS (1)
  - Cough [Unknown]
